FAERS Safety Report 13305583 (Version 3)
Quarter: 2017Q2

REPORT INFORMATION
  Report Type: Spontaneous
  Country: JP (occurrence: JP)
  Receive Date: 20170308
  Receipt Date: 20170501
  Transmission Date: 20170830
  Serious: Yes (Life-Threatening, Other)
  Sender: FDA-Public Use
  Company Number: JP-PFIZER INC-2016443396

PATIENT
  Age: 46 Year
  Sex: Male
  Weight: 80 kg

DRUGS (8)
  1. NOVASTAN [Concomitant]
     Active Substance: ARGATROBAN
     Indication: CEREBRAL INFARCTION
     Dosage: 6 DF, 1X/DAY
     Route: 041
     Dates: start: 20131223, end: 20131223
  2. FOSPHENYTOIN SODIUM. [Suspect]
     Active Substance: FOSPHENYTOIN SODIUM
     Indication: EPILEPSY
     Dosage: 1500 MG, 1X/DAY
     Route: 041
     Dates: start: 20131221, end: 20131221
  3. DEPAKENE [Concomitant]
     Active Substance: VALPROIC ACID
     Indication: SEIZURE
     Dosage: 400 MG, 2X/DAY
     Route: 048
     Dates: start: 20131222, end: 20131222
  4. RADICUT [Concomitant]
     Active Substance: EDARAVONE
     Indication: CEREBRAL INFARCTION
     Dosage: 30 MG, 1X/DAY
     Route: 041
     Dates: start: 20131223, end: 20131223
  5. DEPAKENE [Concomitant]
     Active Substance: VALPROIC ACID
     Dosage: 100 MG, 1X/DAY
     Route: 048
     Dates: start: 20131222, end: 20131222
  6. FOSPHENYTOIN SODIUM. [Suspect]
     Active Substance: FOSPHENYTOIN SODIUM
     Dosage: 0.8 DF, 1X/DAY
     Route: 041
     Dates: start: 20131222, end: 20131223
  7. LOW MOLECULAR DEXTRAN L [Concomitant]
     Indication: CEREBRAL INFARCTION
     Dosage: 500 ML, 1X/DAY
     Route: 041
     Dates: start: 20131223, end: 20131223
  8. CERCINE [Concomitant]
     Active Substance: DIAZEPAM
     Indication: SEIZURE
     Dosage: 1 DF, 1X/DAY
     Route: 042
     Dates: start: 20131221, end: 20131221

REACTIONS (1)
  - Acute kidney injury [Unknown]

NARRATIVE: CASE EVENT DATE: 20131223
